FAERS Safety Report 6123540-6 (Version None)
Quarter: 2009Q1

REPORT INFORMATION
  Report Type: 
  Country: None (occurrence: None)
  Receive Date: 20090318
  Receipt Date: 20090305
  Transmission Date: 20090719
  Serious: Yes (Hospitalization, Other)
  Sender: FDA-Public Use
  Company Number: FR-MERCK-0903FRA00019

PATIENT
  Age: 51 Year
  Sex: Male

DRUGS (12)
  1. EMEND [Suspect]
     Indication: NAUSEA
     Route: 048
     Dates: start: 20070828, end: 20070828
  2. EMEND [Suspect]
     Route: 048
     Dates: start: 20070921, end: 20070921
  3. EMEND [Suspect]
     Route: 048
     Dates: start: 20071018, end: 20071018
  4. GEMCITABINE [Suspect]
     Indication: BLADDER NEOPLASM
     Route: 042
     Dates: start: 20070828, end: 20070828
  5. GEMCITABINE [Suspect]
     Route: 042
     Dates: start: 20070921, end: 20070921
  6. GEMCITABINE [Suspect]
     Route: 042
     Dates: start: 20071018, end: 20071018
  7. CISPLATIN [Suspect]
     Indication: BLADDER NEOPLASM
     Route: 042
     Dates: start: 20070828, end: 20070828
  8. CISPLATIN [Suspect]
     Route: 042
     Dates: start: 20070921, end: 20070921
  9. CISPLATIN [Suspect]
     Route: 042
     Dates: start: 20071018, end: 20071018
  10. PREGABALIN [Suspect]
     Indication: BLADDER NEOPLASM
     Route: 048
     Dates: start: 20070830, end: 20071023
  11. MORPHINE SULFATE [Concomitant]
     Route: 048
  12. ZOPICLONE [Concomitant]
     Route: 048

REACTIONS (1)
  - RHABDOMYOLYSIS [None]
